FAERS Safety Report 9669133 (Version 1)
Quarter: 2013Q4

REPORT INFORMATION
  Report Type: Spontaneous
  Country: AT (occurrence: AT)
  Receive Date: 20131105
  Receipt Date: 20131105
  Transmission Date: 20140711
  Serious: Yes (Hospitalization, Other)
  Sender: FDA-Public Use
  Company Number: AT-ASTELLAS-2013EU009513

PATIENT
  Sex: Male

DRUGS (1)
  1. XTANDI [Suspect]
     Dosage: UNK
     Route: 065

REACTIONS (2)
  - Vertigo [Not Recovered/Not Resolved]
  - Anaemia [Unknown]
